FAERS Safety Report 5297228-8 (Version None)
Quarter: 2007Q2

REPORT INFORMATION
  Report Type: 
  Country: None (occurrence: None)
  Receive Date: 20070416
  Receipt Date: 20070404
  Transmission Date: 20071010
  Serious: Yes (Hospitalization, Other)
  Sender: FDA-Public Use
  Company Number: GB-JNJFOC-20070401305

PATIENT
  Sex: Male
  Weight: 74 kg

DRUGS (6)
  1. INFLIXIMAB [Suspect]
     Indication: RHEUMATOID ARTHRITIS
     Route: 042
  2. PARACETAMOL [Suspect]
     Indication: DRUG USE FOR UNKNOWN INDICATION
  3. METHOTREXATE [Concomitant]
  4. BUPROPION HCL [Concomitant]
  5. FOLIC ACID [Concomitant]
  6. INDOMETHACIN [Concomitant]

REACTIONS (3)
  - DEPRESSED MOOD [None]
  - OVERDOSE [None]
  - SUICIDE ATTEMPT [None]
